FAERS Safety Report 8291892-7 (Version None)
Quarter: 2012Q2

REPORT INFORMATION
  Report Type: 
  Country: None (occurrence: None)
  Receive Date: 20120417
  Receipt Date: 20110316
  Transmission Date: 20120825
  Serious: No
  Sender: FDA-Public Use
  Company Number: US-ASTRAZENECA-2011SE15239

PATIENT
  Age: 564 Month
  Sex: Female

DRUGS (3)
  1. NEXIUM [Suspect]
     Indication: GASTROOESOPHAGEAL REFLUX DISEASE
     Route: 048
     Dates: end: 20100201
  2. PRISTIQ [Concomitant]
  3. SEROQUEL XR [Suspect]
     Indication: DEPRESSION
     Route: 048
     Dates: start: 20100101, end: 20110201

REACTIONS (3)
  - CHEST PAIN [None]
  - HEADACHE [None]
  - DRUG DOSE OMISSION [None]
